FAERS Safety Report 8516522-8 (Version None)
Quarter: 2012Q3

REPORT INFORMATION
  Report Type: 
  Country: None (occurrence: None)
  Receive Date: 20120711
  Receipt Date: 20120711
  Transmission Date: 20120928
  Serious: Yes (Other)
  Sender: FDA-Public Use
  Company Number: None

PATIENT
  Sex: Male

DRUGS (2)
  1. PEGASYS [Suspect]
     Indication: HEPATITIS C
     Dosage: 180 MCG QWEEKLY SQ
     Route: 058
     Dates: start: 20120706, end: 20120707
  2. RIBAVIRIN [Suspect]
     Indication: HEPATITIS C
     Dosage: 600MG BID PO
     Route: 048
     Dates: start: 20120706, end: 20120707

REACTIONS (4)
  - DEPRESSION [None]
  - VOMITING [None]
  - FEELING COLD [None]
  - DIZZINESS [None]
